FAERS Safety Report 7362239-5 (Version None)
Quarter: 2011Q1

REPORT INFORMATION
  Report Type: 
  Country: None (occurrence: None)
  Receive Date: 20110318
  Receipt Date: 20110307
  Transmission Date: 20110831
  Serious: Yes (Other)
  Sender: FDA-Public Use
  Company Number: PHHY2011CA19545

PATIENT
  Sex: Male

DRUGS (1)
  1. ZOMETA [Suspect]
     Indication: URETERIC CANCER METASTATIC
     Dosage: 4 MG,ONCE A MONTH
     Route: 042
     Dates: start: 20100908

REACTIONS (1)
  - GENERAL PHYSICAL HEALTH DETERIORATION [None]
